FAERS Safety Report 4727465-X (Version None)
Quarter: 2005Q3

REPORT INFORMATION
  Report Type: 
  Country: None (occurrence: None)
  Receive Date: 20050727
  Receipt Date: 20050727
  Transmission Date: 20060218
  Serious: Yes (Hospitalization)
  Sender: FDA-Public Use
  Company Number: None

PATIENT
  Age: 37 Year
  Sex: Female
  Weight: 27.2158 kg

DRUGS (8)
  1. PROMETHAZINE [Suspect]
     Indication: NAUSEA
     Dosage: 12.5 G IV
     Route: 042
  2. METHADONE [Concomitant]
  3. FENTANYL [Concomitant]
  4. MS CONTIN [Concomitant]
  5. LOVENOX [Concomitant]
  6. COUMADIN [Concomitant]
  7. LANTUS [Concomitant]
  8. ZYVOX [Concomitant]

REACTIONS (2)
  - INFUSION SITE REACTION [None]
  - SOFT TISSUE INFECTION [None]
